FAERS Safety Report 9018190 (Version 1)
Quarter: 2013Q1

REPORT INFORMATION
  Report Type: Spontaneous
  Country: US (occurrence: None)
  Receive Date: 20130111
  Receipt Date: 20130111
  Transmission Date: 20140127
  Serious: Yes (Other)
  Sender: FDA-Public Use
  Company Number: None

PATIENT
  Age: 26 Year
  Sex: Male
  Weight: 68.04 kg

DRUGS (1)
  1. OXYCONTIN [Suspect]
     Dosage: 40MG 1 EVERY 12 HOURS PO
     Route: 048
     Dates: start: 20121201, end: 20130101

REACTIONS (6)
  - Abdominal pain upper [None]
  - Migraine [None]
  - Hypertension [None]
  - Medication residue present [None]
  - Medication residue present [None]
  - Product formulation issue [None]
